FAERS Safety Report 4791836-6 (Version None)
Quarter: 2005Q4

REPORT INFORMATION
  Report Type: 
  Country: None (occurrence: None)
  Receive Date: 20051005
  Receipt Date: 20050921
  Transmission Date: 20060501
  Serious: Yes (Other)
  Sender: FDA-Public Use
  Company Number: US016054

PATIENT
  Age: 63 Year
  Sex: Male

DRUGS (5)
  1. MODAFINIL [Suspect]
     Indication: NARCOLEPSY
     Dosage: 200 MG QD ORAL
     Route: 048
     Dates: start: 20041205, end: 20050419
  2. MODAFINIL [Suspect]
     Indication: NARCOLEPSY
     Dosage: 300 MG QD ORAL
     Route: 048
     Dates: start: 20050420, end: 20050913
  3. ANAFRANIL [Suspect]
     Indication: CATAPLEXY
     Dosage: 20 MG QD ORAL
     Route: 048
     Dates: start: 20031203, end: 20041216
  4. ANAFRANIL [Suspect]
     Indication: CATAPLEXY
     Dosage: 30 MG QD ORAL
     Route: 048
     Dates: start: 20041217, end: 20050418
  5. ANAFRANIL [Suspect]
     Indication: CATAPLEXY
     Dosage: 40 MG QD ORAL
     Route: 048
     Dates: start: 20050419

REACTIONS (1)
  - LOSS OF CONSCIOUSNESS [None]
